FAERS Safety Report 6100779-7 (Version None)
Quarter: 2009Q1

REPORT INFORMATION
  Report Type: 
  Country: None (occurrence: None)
  Receive Date: 20090303
  Receipt Date: 20090224
  Transmission Date: 20090719
  Serious: Yes (Other)
  Sender: FDA-Public Use
  Company Number: FR-ASTRAZENECA-2008CG01385

PATIENT
  Age: 821 Month
  Sex: Male
  Weight: 70 kg

DRUGS (6)
  1. CASODEX [Suspect]
     Indication: PROSTATE CANCER
     Route: 048
     Dates: start: 20080501, end: 20081015
  2. ZOLADEX [Suspect]
     Indication: PROSTATE CANCER
     Route: 058
     Dates: start: 20080501
  3. XATRAL [Suspect]
     Indication: DYSURIA
     Route: 048
     Dates: start: 20080501, end: 20081015
  4. RADIOTHERAPY [Concomitant]
     Indication: PROSTATE CANCER
     Dosage: TWO GRAYS DAILY FIVE DAYS PER WEEK
     Dates: start: 20080920, end: 20081121
  5. COSOPT [Concomitant]
     Indication: GLAUCOMA
  6. XALATAN [Concomitant]
     Indication: GLAUCOMA

REACTIONS (1)
  - OPTIC NEUROPATHY [None]
